FAERS Safety Report 7561168-1 (Version None)
Quarter: 2011Q2

REPORT INFORMATION
  Report Type: 
  Country: None (occurrence: None)
  Receive Date: 20110621
  Receipt Date: 20110131
  Transmission Date: 20111010
  Serious: No
  Sender: FDA-Public Use
  Company Number: US-ASTRAZENECA-2009SE30267

PATIENT
  Age: 69 Year
  Sex: Male

DRUGS (16)
  1. FERREX [Concomitant]
  2. SPIRIVA [Concomitant]
  3. GLYBURIDE [Concomitant]
  4. FUROSEMIDE [Concomitant]
  5. FOLIC ACID [Concomitant]
  6. PULMICORT FLEXHALER [Suspect]
     Indication: CHRONIC OBSTRUCTIVE PULMONARY DISEASE
     Dosage: 180 MCG  TWO PUFFS TWICE A DAY
     Route: 055
     Dates: start: 20100101
  7. PEROGESIC [Concomitant]
  8. ISOSORBIDE [Concomitant]
  9. CLINORIL [Concomitant]
  10. COREG [Concomitant]
  11. NEXIUM [Concomitant]
  12. ASACOL [Concomitant]
  13. SIMVASTATIN [Concomitant]
  14. SPIRONOLACTONE [Concomitant]
  15. FLUTICASONE PROPIONATE [Concomitant]
  16. LORATADINE [Concomitant]

REACTIONS (3)
  - BURNING SENSATION [None]
  - TREMOR [None]
  - DYSPNOEA [None]
